FAERS Safety Report 5897855-0 (Version None)
Quarter: 2008Q3

REPORT INFORMATION
  Report Type: 
  Country: None (occurrence: None)
  Receive Date: 20080924
  Receipt Date: 20080924
  Transmission Date: 20090109
  Serious: Yes (Life-Threatening, Hospitalization)
  Sender: FDA-Public Use
  Company Number: None

PATIENT
  Age: 49 Year
  Sex: Female
  Weight: 77.1115 kg

DRUGS (1)
  1. LAMICTAL [Suspect]
     Indication: MAJOR DEPRESSION
     Dosage: 400 MG. DAILY PO
     Route: 048
     Dates: start: 20060127, end: 20070614

REACTIONS (1)
  - CARDIAC FAILURE CONGESTIVE [None]
